FAERS Safety Report 7214750-5 (Version None)
Quarter: 2011Q1

REPORT INFORMATION
  Report Type: 
  Country: None (occurrence: None)
  Receive Date: 20110107
  Receipt Date: 20100120
  Transmission Date: 20110831
  Serious: No
  Sender: FDA-Public Use
  Company Number: A0841043A

PATIENT
  Sex: Female

DRUGS (2)
  1. ALCOHOL [Suspect]
  2. LOVAZA [Suspect]

REACTIONS (4)
  - ERUCTATION [None]
  - DYSGEUSIA [None]
  - DRUG INTERACTION [None]
  - DYSPEPSIA [None]
